FAERS Safety Report 19082624 (Version 1)
Quarter: 2021Q2

REPORT INFORMATION
  Report Type: Spontaneous
  Country: IT (occurrence: IT)
  Receive Date: 20210401
  Receipt Date: 20210401
  Transmission Date: 20210717
  Serious: Yes (Other)
  Sender: FDA-Public Use
  Company Number: IT-CHEPLA-C20211561

PATIENT
  Age: 8 Year
  Sex: Female

DRUGS (3)
  1. FOSCARNET [Suspect]
     Active Substance: FOSCARNET
     Indication: CYTOMEGALOVIRUS VIRAEMIA
  2. MEGALOTECT [Concomitant]
     Indication: ANTIVIRAL PROPHYLAXIS
     Dosage: 100 U/KG TWICE A WEEK
  3. GANCICLOVIR. [Suspect]
     Active Substance: GANCICLOVIR
     Indication: CYTOMEGALOVIRUS VIRAEMIA

REACTIONS (2)
  - Product use issue [Unknown]
  - Drug ineffective [Unknown]
